FAERS Safety Report 21328491 (Version 2)
Quarter: 2022Q4

REPORT INFORMATION
  Report Type: Spontaneous
  Country: US (occurrence: US)
  Receive Date: 20220913
  Receipt Date: 20221122
  Transmission Date: 20230113
  Serious: Yes (Other)
  Sender: FDA-Public Use
  Company Number: US-Blueprint Medicines Corporation-412

PATIENT
  Sex: Female

DRUGS (2)
  1. AYVAKIT [Suspect]
     Active Substance: AVAPRITINIB
     Indication: Diffuse cutaneous mastocytosis
     Route: 065
     Dates: start: 20220706
  2. AYVAKIT [Suspect]
     Active Substance: AVAPRITINIB
     Route: 065
     Dates: start: 20220706

REACTIONS (5)
  - Blood iron abnormal [Unknown]
  - Gastrointestinal disorder [Unknown]
  - Flushing [Recovered/Resolved]
  - Photosensitivity reaction [Recovered/Resolved]
  - Off label use [Unknown]
